FAERS Safety Report 7623791-5 (Version None)
Quarter: 2011Q3

REPORT INFORMATION
  Report Type: 
  Country: None (occurrence: None)
  Receive Date: 20110719
  Receipt Date: 20110719
  Transmission Date: 20111222
  Serious: Yes (Other)
  Sender: FDA-Public Use
  Company Number: None

PATIENT
  Age: 1 Day
  Sex: Male
  Weight: 4.25 kg

DRUGS (2)
  1. ERYTHROMYCIN [Suspect]
     Indication: OPHTHALMIA NEONATORUM
     Dosage: THIN RIBBON ONCE TO BOTH EYES
     Dates: start: 20110707
  2. ERYTHROMYCIN [Suspect]
     Indication: PROPHYLAXIS
     Dosage: THIN RIBBON ONCE TO BOTH EYES
     Dates: start: 20110707

REACTIONS (1)
  - RASH [None]
